FAERS Safety Report 24164560 (Version 4)
Quarter: 2024Q4

REPORT INFORMATION
  Report Type: Report from Study
  Country: US (occurrence: US)
  Receive Date: 20240801
  Receipt Date: 20241227
  Transmission Date: 20250114
  Serious: Yes (Hospitalization)
  Sender: NOVARTIS
  Company Number: US-002147023-NVSC2024US155083

PATIENT
  Sex: Female

DRUGS (1)
  1. KESIMPTA [Suspect]
     Active Substance: OFATUMUMAB
     Indication: Relapsing multiple sclerosis
     Dosage: UNK
     Route: 065
     Dates: start: 20230809

REACTIONS (7)
  - Hernia [Unknown]
  - Illness [Unknown]
  - Pyrexia [Unknown]
  - Infection [Unknown]
  - Foreign body in respiratory tract [Unknown]
  - Dyspnoea [Unknown]
  - Post procedural complication [Unknown]
